FAERS Safety Report 7774530-9 (Version None)
Quarter: 2011Q3

REPORT INFORMATION
  Report Type: 
  Country: None (occurrence: None)
  Receive Date: 20110923
  Receipt Date: 20110923
  Transmission Date: 20111222
  Serious: Yes (Hospitalization)
  Sender: FDA-Public Use
  Company Number: None

PATIENT
  Age: 69 Year
  Sex: Female
  Weight: 90.718 kg

DRUGS (2)
  1. ISOVUE-M 200 [Suspect]
     Indication: PAIN
     Dosage: 5ML
     Route: 019
     Dates: start: 20110829, end: 20110829
  2. XYLOCAINE [Concomitant]
     Indication: PAIN
     Dosage: 2ML
     Route: 019
     Dates: start: 20110829, end: 20110829

REACTIONS (6)
  - CHEST PAIN [None]
  - CYANOSIS [None]
  - HEART RATE DECREASED [None]
  - LOSS OF CONSCIOUSNESS [None]
  - DYSPNOEA [None]
  - RESPIRATORY ARREST [None]
